FAERS Safety Report 8392011-9 (Version None)
Quarter: 2012Q2

REPORT INFORMATION
  Report Type: 
  Country: None (occurrence: None)
  Receive Date: 20120529
  Receipt Date: 20120524
  Transmission Date: 20120825
  Serious: Yes (Life-Threatening, Hospitalization)
  Sender: FDA-Public Use
  Company Number: US-JNJFOC-20120312352

PATIENT
  Sex: Female
  Weight: 80.74 kg

DRUGS (9)
  1. DURAGESIC-100 [Suspect]
     Indication: ARTHRITIS
     Route: 062
  2. DURAGESIC-100 [Suspect]
     Indication: INJURY
     Route: 062
  3. UNKNOWN MEDICATION [Concomitant]
     Indication: BLOOD PRESSURE
     Route: 065
  4. NEURONTIN [Concomitant]
     Indication: NEURALGIA
     Route: 048
  5. DURAGESIC-100 [Suspect]
     Indication: FIBROMYALGIA
     Route: 062
  6. DURAGESIC-100 [Suspect]
     Route: 062
  7. HYDROCODONE BITARTRATE [Concomitant]
     Indication: BREAKTHROUGH PAIN
     Route: 048
  8. DURAGESIC-100 [Suspect]
     Route: 062
  9. DURAGESIC-100 [Suspect]
     Route: 062

REACTIONS (6)
  - COMA [None]
  - ROAD TRAFFIC ACCIDENT [None]
  - SKULL FRACTURE [None]
  - FALL [None]
  - SUBDURAL HAEMATOMA [None]
  - PAIN [None]
